FAERS Safety Report 4793609-7 (Version None)
Quarter: 2005Q4

REPORT INFORMATION
  Report Type: 
  Country: None (occurrence: None)
  Receive Date: 20051011
  Receipt Date: 20050812
  Transmission Date: 20060501
  Serious: Yes (Hospitalization, Other)
  Sender: FDA-Public Use
  Company Number: GB-BOEHRINGER INGELHEIM PHARMACEUTICALS, INC.-2005-UK-01519UK

PATIENT
  Sex: Male

DRUGS (7)
  1. SPIRIVA [Suspect]
     Indication: CHRONIC OBSTRUCTIVE PULMONARY DISEASE
     Route: 055
     Dates: start: 20041201
  2. ALBUTEROL [Concomitant]
  3. NIFEDIPINE [Concomitant]
  4. ASPIRIN [Concomitant]
  5. SERETIDE [Concomitant]
  6. BICALUTAMIDE [Concomitant]
  7. SISPERIDONE [Concomitant]

REACTIONS (2)
  - CHRONIC OBSTRUCTIVE PULMONARY DISEASE [None]
  - GASTROINTESTINAL HYPOMOTILITY [None]
